FAERS Safety Report 23946211 (Version 1)
Quarter: 2024Q2

REPORT INFORMATION
  Report Type: Spontaneous
  Country: US (occurrence: US)
  Receive Date: 20240606
  Receipt Date: 20240606
  Transmission Date: 20240715
  Serious: Yes (Hospitalization, Other)
  Sender: FDA-Public Use
  Company Number: US-LUPIN PHARMACEUTICALS INC.-2024-04692

PATIENT
  Age: 71 Year
  Sex: Female

DRUGS (7)
  1. TENOFOVIR ALAFENAMIDE [Suspect]
     Active Substance: TENOFOVIR ALAFENAMIDE
     Indication: Acquired immunodeficiency syndrome
     Dosage: UNK
     Route: 065
  2. TENOFOVIR ALAFENAMIDE [Suspect]
     Active Substance: TENOFOVIR ALAFENAMIDE
     Indication: Encephalopathy
  3. BICTEGRAVIR [Suspect]
     Active Substance: BICTEGRAVIR
     Indication: Acquired immunodeficiency syndrome
     Dosage: UNK
     Route: 065
  4. BICTEGRAVIR [Suspect]
     Active Substance: BICTEGRAVIR
     Indication: Encephalopathy
  5. EMTRICITABINE [Suspect]
     Active Substance: EMTRICITABINE
     Indication: Acquired immunodeficiency syndrome
     Dosage: UNK
     Route: 065
  6. EMTRICITABINE [Suspect]
     Active Substance: EMTRICITABINE
     Indication: Encephalopathy
  7. PANTOPRAZOLE [Concomitant]
     Active Substance: PANTOPRAZOLE
     Indication: Gastritis
     Dosage: 40 MG
     Route: 065

REACTIONS (3)
  - Immune reconstitution inflammatory syndrome [Recovering/Resolving]
  - Small intestinal obstruction [Recovering/Resolving]
  - Pneumocystis jirovecii infection [Recovering/Resolving]
